FAERS Safety Report 7054522-8 (Version None)
Quarter: 2010Q4

REPORT INFORMATION
  Report Type: 
  Country: None (occurrence: None)
  Receive Date: 20101020
  Receipt Date: 20101007
  Transmission Date: 20110411
  Serious: Yes (Other)
  Sender: FDA-Public Use
  Company Number: PHHY2010DE67549

PATIENT
  Sex: Female

DRUGS (4)
  1. ACLASTA [Suspect]
     Indication: OSTEOPOROSIS
     Dosage: 5MG
     Route: 042
     Dates: start: 20101007
  2. AROMASIN [Concomitant]
  3. LEVOTHYROXINE SODIUM [Concomitant]
  4. NUTRITION SUPPLEMENTS [Concomitant]

REACTIONS (5)
  - BONE PAIN [None]
  - FEELING ABNORMAL [None]
  - INFLUENZA [None]
  - METASTASIS [None]
  - OSTEOPOROSIS [None]
